FAERS Safety Report 26186417 (Version 1)
Quarter: 2025Q4

REPORT INFORMATION
  Report Type: Spontaneous
  Country: EU (occurrence: EU)
  Receive Date: 20251222
  Receipt Date: 20251222
  Transmission Date: 20260117
  Serious: Yes (Hospitalization)
  Sender: TEVA
  Company Number: None

PATIENT
  Age: 84 Year
  Sex: Male

DRUGS (8)
  1. ALLOPURINOL [Suspect]
     Active Substance: ALLOPURINOL
     Indication: Tumour lysis syndrome
     Route: 048
     Dates: start: 20250903, end: 20251013
  2. RITUXIMAB [Suspect]
     Active Substance: RITUXIMAB
     Indication: Marginal zone lymphoma
     Dosage: ((MAMMAL/HAMSTER/CHO CELLS))
     Route: 042
     Dates: start: 20250902, end: 20250902
  3. RITUXIMAB [Suspect]
     Active Substance: RITUXIMAB
     Indication: Marginal zone lymphoma
     Dosage: NOT SPECIFIED
     Route: 042
     Dates: start: 20250925, end: 20250925
  4. BENDAMUSTINE HYDROCHLORIDE [Concomitant]
     Active Substance: BENDAMUSTINE HYDROCHLORIDE
     Indication: Marginal zone lymphoma
     Dosage: C2J1
     Route: 042
     Dates: start: 20250925, end: 20250925
  5. BENDAMUSTINE HYDROCHLORIDE [Concomitant]
     Active Substance: BENDAMUSTINE HYDROCHLORIDE
     Indication: Marginal zone lymphoma
     Dosage: C1J1, C1J2
     Route: 042
     Dates: start: 20250902, end: 20250903
  6. PENTACARINAT [Concomitant]
     Active Substance: PENTAMIDINE ISETHIONATE
     Indication: Prophylaxis
     Dosage: 2 DOSES
     Route: 065
     Dates: start: 20250925, end: 20250925
  7. PENTACARINAT [Concomitant]
     Active Substance: PENTAMIDINE ISETHIONATE
     Indication: Prophylaxis
     Dosage: 2 DOSES, 300 MG, POWDER FOR AEROSOL AND PARENTERAL USE
     Route: 065
     Dates: start: 20250902, end: 20250902
  8. VALACYCLOVIR HYDROCHLORIDE [Suspect]
     Active Substance: VALACYCLOVIR HYDROCHLORIDE
     Indication: Prophylaxis
     Route: 048
     Dates: start: 20250902, end: 20251013

REACTIONS (1)
  - Drug reaction with eosinophilia and systemic symptoms [Recovering/Resolving]

NARRATIVE: CASE EVENT DATE: 20250928
